FAERS Safety Report 9197329 (Version 1)
Quarter: 2013Q1

REPORT INFORMATION
  Report Type: Spontaneous
  Country: US (occurrence: US)
  Receive Date: 20130328
  Receipt Date: 20130328
  Transmission Date: 20140127
  Serious: Yes (Other)
  Sender: FDA-Public Use
  Company Number: PHEH2013US006792

PATIENT
  Sex: Male

DRUGS (6)
  1. ARCAPTA [Suspect]
     Dosage: 75 MG, QD
  2. FLOVENT [Concomitant]
     Dosage: 110 MG, UNK
  3. ALBUTEROL [Concomitant]
  4. ATROVENT [Concomitant]
  5. LISINOPRIL [Concomitant]
  6. VITAMIN D [Concomitant]

REACTIONS (2)
  - Lung disorder [Unknown]
  - Diaphragmatic paralysis [Unknown]
